FAERS Safety Report 18039605 (Version 5)
Quarter: 2020Q4

REPORT INFORMATION
  Report Type: Spontaneous
  Country: IE (occurrence: IE)
  Receive Date: 20200717
  Receipt Date: 20201102
  Transmission Date: 20210113
  Serious: No
  Sender: FDA-Public Use
  Company Number: IE-JNJFOC-20200723966

PATIENT

DRUGS (10)
  1. DUROGESIC D-TRANS [Suspect]
     Active Substance: FENTANYL
  2. DUROGESIC D-TRANS [Suspect]
     Active Substance: FENTANYL
     Indication: PRODUCT USED FOR UNKNOWN INDICATION
     Route: 062
  3. DUROGESIC D-TRANS [Suspect]
     Active Substance: FENTANYL
  4. DUROGESIC D-TRANS [Suspect]
     Active Substance: FENTANYL
  5. DUROGESIC D-TRANS [Suspect]
     Active Substance: FENTANYL
  6. DUROGESIC D-TRANS [Suspect]
     Active Substance: FENTANYL
  7. DUROGESIC D-TRANS [Suspect]
     Active Substance: FENTANYL
  8. DUROGESIC D-TRANS [Suspect]
     Active Substance: FENTANYL
  9. DUROGESIC D-TRANS [Suspect]
     Active Substance: FENTANYL
     Indication: PRODUCT USED FOR UNKNOWN INDICATION
     Route: 062
  10. DUROGESIC D-TRANS [Suspect]
     Active Substance: FENTANYL

REACTIONS (3)
  - Product adhesion issue [Unknown]
  - Wrong technique in product usage process [Unknown]
  - Underdose [Unknown]
